FAERS Safety Report 10023393 (Version 2)
Quarter: 2014Q1

REPORT INFORMATION
  Report Type: Report from Study
  Country: CA (occurrence: CA)
  Receive Date: 20140320
  Receipt Date: 20140320
  Transmission Date: 20141002
  Serious: Yes (Other)
  Sender: FDA-Public Use
  Company Number: CA-ROCHE-1138609

PATIENT
  Age: 56 Year
  Sex: Female
  Weight: 54.4 kg

DRUGS (5)
  1. ACTEMRA [Suspect]
     Indication: RHEUMATOID ARTHRITIS
     Route: 042
     Dates: start: 20120827
  2. PREDNISONE [Concomitant]
  3. APO-CAL [Concomitant]
  4. CALCITRIOL [Concomitant]
  5. EPREX [Concomitant]

REACTIONS (6)
  - Localised infection [Unknown]
  - Sepsis [Unknown]
  - Hiatus hernia [Unknown]
  - Oropharyngeal pain [Unknown]
  - Hypertension [Unknown]
  - Arthritis [Unknown]
